FAERS Safety Report 11926819 (Version 2)
Quarter: 2017Q1

REPORT INFORMATION
  Report Type: Spontaneous
  Country: DE (occurrence: DE)
  Receive Date: 20160119
  Receipt Date: 20170103
  Transmission Date: 20170428
  Serious: Yes (Hospitalization, Other)
  Sender: FDA-Public Use
  Company Number: DE-SUN PHARMACEUTICAL INDUSTRIES LTD-2016R1-109876

PATIENT
  Age: 71 Year
  Sex: Male

DRUGS (5)
  1. MYCOPHENOLATE [Suspect]
     Active Substance: MYCOPHENOLIC ACID
     Dosage: 500 MG, DAILY
  2. MYCOPHENOLATE [Suspect]
     Active Substance: MYCOPHENOLIC ACID
     Indication: IMMUNOSUPPRESSION
     Dosage: 1000 MG, DAILY
     Route: 065
  3. PREDNISONE. [Suspect]
     Active Substance: PREDNISONE
     Indication: IMMUNOSUPPRESSION
     Dosage: 10 MG, DAILY
     Route: 065
  4. COTRIMOXAZOLE [Suspect]
     Active Substance: SULFAMETHOXAZOLE\TRIMETHOPRIM
     Indication: NOCARDIOSIS
     Dosage: 3840 MG, DAILY
     Route: 048
  5. PREDNISONE. [Suspect]
     Active Substance: PREDNISONE
     Dosage: 5 MG, DAILY
     Route: 065

REACTIONS (10)
  - Abscess limb [Recovering/Resolving]
  - Vomiting [Recovered/Resolved]
  - Decreased appetite [Recovered/Resolved]
  - Asthenia [Recovered/Resolved]
  - Lung infiltration [Recovering/Resolving]
  - Lung abscess [Recovering/Resolving]
  - Atelectasis [Recovering/Resolving]
  - Nausea [Recovered/Resolved]
  - Nocardiosis [Unknown]
  - Haemolytic anaemia [Recovered/Resolved]
